FAERS Safety Report 9461562 (Version 1)
Quarter: 2013Q3

REPORT INFORMATION
  Report Type: Spontaneous
  Country: FR (occurrence: FR)
  Receive Date: 20130816
  Receipt Date: 20130816
  Transmission Date: 20140515
  Serious: Yes (Hospitalization)
  Sender: FDA-Public Use
  Company Number: FR-PFIZER INC-2013235040

PATIENT
  Age: 61 Year
  Sex: Female

DRUGS (9)
  1. TAZOCILLINE [Suspect]
     Indication: ERYSIPELAS
     Dosage: 4 G, 1X/DAY
     Route: 042
     Dates: start: 20121219, end: 20121221
  2. VANCOMYCINE [Suspect]
     Indication: ERYSIPELAS
     Dosage: 1 G, 2X/DAY
     Route: 048
     Dates: start: 20121207, end: 20121218
  3. PREVISCAN [Concomitant]
  4. EUPANTOL [Concomitant]
  5. TARDYFERON [Concomitant]
  6. CO-RENITEC [Concomitant]
  7. PYOSTACINE [Concomitant]
  8. VITAMIN C [Concomitant]
  9. VENOFER [Concomitant]

REACTIONS (1)
  - Drug reaction with eosinophilia and systemic symptoms [Recovered/Resolved]
